FAERS Safety Report 5017073-8 (Version None)
Quarter: 2006Q2

REPORT INFORMATION
  Report Type: 
  Country: None (occurrence: None)
  Receive Date: 20060526
  Receipt Date: 20060509
  Transmission Date: 20061013
  Serious: Yes (Hospitalization, Other)
  Sender: FDA-Public Use
  Company Number: US200604003648

PATIENT
  Age: 51 Year
  Sex: Male
  Weight: 163.3 kg

DRUGS (7)
  1. CYMBALTA [Suspect]
     Indication: SPINAL COLUMN STENOSIS
     Dosage: SEE IMAGE
     Dates: start: 20050501, end: 20050101
  2. CYMBALTA [Suspect]
     Indication: SPINAL COLUMN STENOSIS
     Dosage: SEE IMAGE
     Dates: start: 20050216, end: 20050501
  3. CYMBALTA [Suspect]
     Indication: SPINAL COLUMN STENOSIS
     Dosage: SEE IMAGE
     Dates: start: 20050101, end: 20051117
  4. CYMBALTA [Suspect]
     Indication: SPINAL COLUMN STENOSIS
     Dosage: SEE IMAGE
     Dates: start: 20051117, end: 20051201
  5. CYMBALTA [Suspect]
     Indication: SPINAL COLUMN STENOSIS
     Dosage: SEE IMAGE
     Dates: start: 20051201, end: 20060103
  6. LIPITOR [Concomitant]
  7. PREGABALIN (PREGABALIN) [Concomitant]

REACTIONS (7)
  - ALANINE AMINOTRANSFERASE INCREASED [None]
  - ASPARTATE AMINOTRANSFERASE INCREASED [None]
  - BLOOD ALKALINE PHOSPHATASE INCREASED [None]
  - BLOOD CREATININE INCREASED [None]
  - BLOOD UREA INCREASED [None]
  - CARDIAC DISORDER [None]
  - PRESCRIBED OVERDOSE [None]
